FAERS Safety Report 8815802 (Version 3)
Quarter: 2013Q1

REPORT INFORMATION
  Report Type: Spontaneous
  Country: US (occurrence: US)
  Receive Date: 20120928
  Receipt Date: 20130122
  Transmission Date: 20140127
  Serious: Yes (Other)
  Sender: FDA-Public Use
  Company Number: US-ASTRAZENECA-2012SE73237

PATIENT
  Age: 52 Year
  Sex: Male

DRUGS (1)
  1. NEXIUM [Suspect]
     Route: 048

REACTIONS (4)
  - Laryngeal cancer [Unknown]
  - Head and neck cancer [Unknown]
  - Pharyngitis [Unknown]
  - Vocal cord polyp [Unknown]
